FAERS Safety Report 7205064-8 (Version None)
Quarter: 2010Q4

REPORT INFORMATION
  Report Type: 
  Country: None (occurrence: None)
  Receive Date: 20101230
  Receipt Date: 20101227
  Transmission Date: 20110411
  Serious: Yes (Hospitalization, Other)
  Sender: FDA-Public Use
  Company Number: US-RB-017579-10

PATIENT
  Age: 44 Year
  Sex: Female

DRUGS (2)
  1. SUBOXONE [Suspect]
     Indication: PRODUCT USED FOR UNKNOWN INDICATION
     Dosage: SUBLINGUAL FILM- DOSING INFORMATION UNKNOWN
     Route: 065
  2. MORPHINE [Suspect]
     Indication: PRODUCT USED FOR UNKNOWN INDICATION
     Dosage: DOSING INFORMATION UNKNOWN
     Route: 065

REACTIONS (17)
  - CHILLS [None]
  - DRUG INEFFECTIVE [None]
  - DRY SKIN [None]
  - FALL [None]
  - FATIGUE [None]
  - FUNGAL INFECTION [None]
  - HEADACHE [None]
  - HYPERHIDROSIS [None]
  - IMPATIENCE [None]
  - INFLUENZA LIKE ILLNESS [None]
  - LOSS OF CONSCIOUSNESS [None]
  - NAUSEA [None]
  - OEDEMA PERIPHERAL [None]
  - PAIN [None]
  - PERSONALITY CHANGE [None]
  - URTICARIA [None]
  - YAWNING [None]
